FAERS Safety Report 6021801-2 (Version None)
Quarter: 2008Q4

REPORT INFORMATION
  Report Type: 
  Country: None (occurrence: None)
  Receive Date: 20081229
  Receipt Date: 20081223
  Transmission Date: 20090506
  Serious: Yes (Death, Life-Threatening)
  Sender: FDA-Public Use
  Company Number: SE-AVENTIS-200821811GDDC

PATIENT
  Age: 67 Year
  Sex: Female

DRUGS (17)
  1. AMARYL [Suspect]
     Indication: DIABETES MELLITUS
     Route: 048
     Dates: start: 20080701, end: 20081106
  2. TAVANIC [Suspect]
     Indication: INFECTION
     Route: 048
     Dates: start: 20081104, end: 20081111
  3. OMEPRAZOLE [Concomitant]
  4. METOPROLOL SANDOZ [Concomitant]
  5. NITROLINGUAL [Concomitant]
  6. FOLIC ACID AND DERIVATIVES [Concomitant]
  7. ALVEDON [Concomitant]
  8. SOLU-CORTEF [Concomitant]
  9. DIGOXIN [Concomitant]
  10. FURIX [Concomitant]
  11. SPIRONOLAKTON [Concomitant]
  12. PREDNISOLONE [Concomitant]
  13. SOBRIL [Concomitant]
  14. DEXOFEN [Concomitant]
  15. ALLOPURINOL NORDIC [Concomitant]
  16. IDEOS                              /00944201/ [Concomitant]
     Dosage: DOSE: 500/400
  17. ENALAPRIL MALEATE [Concomitant]

REACTIONS (3)
  - DRUG INTERACTION [None]
  - HYPOGLYCAEMIA [None]
  - NEUTROPENIC INFECTION [None]
